FAERS Safety Report 9980985 (Version 2)
Quarter: 2014Q2

REPORT INFORMATION
  Report Type: Spontaneous
  Country: US (occurrence: US)
  Receive Date: 20140307
  Receipt Date: 20140414
  Transmission Date: 20141212
  Serious: No
  Sender: FDA-Public Use
  Company Number: US-ELI_LILLY_AND_COMPANY-US201403000687

PATIENT
  Age: 60 Year
  Sex: Male
  Weight: 92.52 kg

DRUGS (7)
  1. CIALIS [Suspect]
     Indication: ERECTILE DYSFUNCTION
     Dosage: 40 MG, UNKNOWN
     Route: 065
     Dates: start: 2012
  2. CIALIS [Suspect]
     Dosage: 1 DF, UNKNOWN
     Route: 065
  3. CRESTOR [Concomitant]
     Dosage: 10 MG, UNKNOWN
  4. OMEPRAZOLE [Concomitant]
  5. CELEXA                             /00582602/ [Concomitant]
  6. ASPIRIN [Concomitant]
     Dosage: 81 MG, UNKNOWN
  7. ALLOPURINOL [Concomitant]

REACTIONS (3)
  - Prostatic specific antigen increased [Unknown]
  - Suspected counterfeit product [Unknown]
  - Overdose [Unknown]
